FAERS Safety Report 4547244-6 (Version None)
Quarter: 2005Q1

REPORT INFORMATION
  Report Type: 
  Country: None (occurrence: None)
  Receive Date: 20050105
  Receipt Date: 20041223
  Transmission Date: 20050727
  Serious: Yes (Other)
  Sender: FDA-Public Use
  Company Number: HQWYE693529NOV04

PATIENT
  Age: 74 Year
  Sex: Male

DRUGS (9)
  1. CORDARONE [Suspect]
     Indication: ATRIAL FIBRILLATION
     Dosage: 200 MG 1X PER 1 DAY ORAL
     Route: 048
     Dates: start: 20040810, end: 20041112
  2. MARCUMAR [Suspect]
     Indication: ATRIAL FIBRILLATION
     Dosage: SEE IMAGE
     Route: 048
     Dates: start: 19820101, end: 20040101
  3. MARCUMAR [Suspect]
     Indication: ATRIAL FIBRILLATION
     Dosage: SEE IMAGE
     Route: 048
     Dates: start: 20040101
  4. ENALAPRIL (ENALAPRIL) [Concomitant]
  5. HCT (HYDROCHLOROTHIAZIDE) [Concomitant]
  6. METOPROLOL TARTRATE [Concomitant]
  7. ALNA              (TAMSULOSIN HYDROCHLORIDE) [Concomitant]
  8. EZETROL             (EZETIMIBE) [Concomitant]
  9. SIMVASTATIN [Concomitant]

REACTIONS (4)
  - DRUG INTERACTION [None]
  - HYPERTHYROIDISM [None]
  - INTERNATIONAL NORMALISED RATIO INCREASED [None]
  - PROTHROMBIN TIME PROLONGED [None]
